FAERS Safety Report 14329808 (Version 1)
Quarter: 2017Q4

REPORT INFORMATION
  Report Type: Spontaneous
  Country: FR (occurrence: FR)
  Receive Date: 20171227
  Receipt Date: 20171227
  Transmission Date: 20180321
  Serious: Yes (Death)
  Sender: FDA-Public Use
  Company Number: FR-SA-2017SA258867

PATIENT
  Age: 78 Year
  Sex: Male
  Weight: 78 kg

DRUGS (1)
  1. JEVTANA [Suspect]
     Active Substance: CABAZITAXEL
     Indication: PROSTATE CANCER
     Route: 041
     Dates: start: 20160223, end: 20160223

REACTIONS (4)
  - Vomiting [Fatal]
  - Diarrhoea [Fatal]
  - Agranulocytosis [Fatal]
  - Septic shock [Fatal]

NARRATIVE: CASE EVENT DATE: 20160227
